FAERS Safety Report 5827610-9 (Version None)
Quarter: 2008Q3

REPORT INFORMATION
  Report Type: 
  Country: None (occurrence: None)
  Receive Date: 20080730
  Receipt Date: 20080708
  Transmission Date: 20090109
  Serious: No
  Sender: FDA-Public Use
  Company Number: US-BOEHRINGER INGELHEIM GMBH, GERMANY-2008-BP-10658BP

PATIENT
  Sex: Female

DRUGS (7)
  1. SPIRIVA [Suspect]
     Indication: CHRONIC OBSTRUCTIVE PULMONARY DISEASE
  2. CHANTIX [Suspect]
  3. ALBUTEROL [Concomitant]
  4. NEXIUM [Concomitant]
  5. ASPIRIN [Concomitant]
  6. NEBULIZER [Concomitant]
  7. OXYGEN [Concomitant]
     Route: 045

REACTIONS (5)
  - ABNORMAL DREAMS [None]
  - HERNIA [None]
  - NERVOUSNESS [None]
  - OESOPHAGITIS [None]
  - POOR QUALITY SLEEP [None]
